FAERS Safety Report 16296243 (Version 6)
Quarter: 2020Q3

REPORT INFORMATION
  Report Type: Report from Study
  Country: ES (occurrence: ES)
  Receive Date: 20190510
  Receipt Date: 20200924
  Transmission Date: 20201102
  Serious: Yes (Hospitalization, Other)
  Sender: FDA-Public Use
  Company Number: ES-ROCHE-2304011

PATIENT
  Age: 75 Year
  Sex: Female
  Weight: 73 kg

DRUGS (62)
  1. ATORVASTATIN [Concomitant]
     Active Substance: ATORVASTATIN
     Dates: start: 20190418, end: 20190430
  2. ATORVASTATIN [Concomitant]
     Active Substance: ATORVASTATIN
     Dates: start: 20190906
  3. ATORVASTATIN [Concomitant]
     Active Substance: ATORVASTATIN
     Dates: start: 20190726, end: 20190812
  4. EPROSARTAN [Concomitant]
     Active Substance: EPROSARTAN
     Dates: start: 20190415, end: 20190430
  5. OMEPRAZOLE. [Concomitant]
     Active Substance: OMEPRAZOLE
     Dates: start: 20190815, end: 20190903
  6. POLARAMINE [Concomitant]
     Active Substance: DEXCHLORPHENIRAMINE MALEATE
     Route: 042
     Dates: start: 20190502, end: 20190502
  7. RO7082859 (CD20/C3 T?CELL BISPECIFIC MAB) [Suspect]
     Active Substance: GLOFITAMAB
     Indication: B-CELL LYMPHOMA
     Dosage: BEGINNING CYCLE 1, DAY 1, FOR UP TO 17 CYCLES?DATE OF MOST RECENT DOSE OF RO7082859 (CD20/C3 T?CELL
     Route: 042
     Dates: start: 20190411
  8. ATORVASTATIN [Concomitant]
     Active Substance: ATORVASTATIN
     Indication: HYPERCHOLESTEROLAEMIA
     Dates: start: 1999, end: 20190410
  9. EPROSARTAN [Concomitant]
     Active Substance: EPROSARTAN
     Indication: HYPERTENSION
     Dates: start: 2004, end: 20190403
  10. LORAZEPAM. [Concomitant]
     Active Substance: LORAZEPAM
     Indication: INSOMNIA
     Dates: start: 2018
  11. SALINE [Concomitant]
     Active Substance: SODIUM CHLORIDE
     Indication: PROPHYLAXIS
     Dates: start: 20190410, end: 20190416
  12. ATORVASTATIN [Concomitant]
     Active Substance: ATORVASTATIN
     Dates: start: 20190615, end: 20190702
  13. EPROSARTAN [Concomitant]
     Active Substance: EPROSARTAN
     Dates: start: 20190406, end: 20190410
  14. EPROSARTAN [Concomitant]
     Active Substance: EPROSARTAN
     Dates: start: 20190615, end: 20190702
  15. PARACETAMOL [Concomitant]
     Active Substance: ACETAMINOPHEN
     Dates: start: 20190405, end: 20190405
  16. GLUCOSALINE [Concomitant]
     Indication: PROPHYLAXIS
     Dates: start: 20190403, end: 20190405
  17. SALINE [Concomitant]
     Active Substance: SODIUM CHLORIDE
     Dates: start: 20190501, end: 20190505
  18. OMEPRAZOLE. [Concomitant]
     Active Substance: OMEPRAZOLE
     Dates: start: 20190726, end: 20190812
  19. POLARAMINE [Concomitant]
     Active Substance: DEXCHLORPHENIRAMINE MALEATE
     Indication: RASH
     Dates: start: 20190413, end: 20190413
  20. ATORVASTATIN [Concomitant]
     Active Substance: ATORVASTATIN
     Dates: start: 20190505, end: 20190521
  21. ATORVASTATIN [Concomitant]
     Active Substance: ATORVASTATIN
     Dates: start: 20190526, end: 20190611
  22. ATORVASTATIN [Concomitant]
     Active Substance: ATORVASTATIN
     Dates: start: 1999, end: 20190410
  23. PARACETAMOL [Concomitant]
     Active Substance: ACETAMINOPHEN
     Route: 042
     Dates: start: 20190404, end: 20190404
  24. OMEPRAZOLE. [Concomitant]
     Active Substance: OMEPRAZOLE
     Dates: start: 20190526, end: 20190611
  25. SEGURIL [Concomitant]
     Active Substance: FUROSEMIDE
     Indication: WEIGHT INCREASED
     Dates: start: 20190503, end: 20190503
  26. ATORVASTATIN [Concomitant]
     Active Substance: ATORVASTATIN
     Dates: start: 20190705, end: 20190723
  27. LEVOTIROXINA [Concomitant]
     Active Substance: LEVOTHYROXINE
     Dates: start: 1993
  28. EPROSARTAN [Concomitant]
     Active Substance: EPROSARTAN
     Dates: start: 20190415, end: 20190430
  29. EPROSARTAN [Concomitant]
     Active Substance: EPROSARTAN
     Dates: start: 20190503, end: 20190521
  30. EPROSARTAN [Concomitant]
     Active Substance: EPROSARTAN
     Dates: start: 20190726, end: 20190812
  31. SALINE [Concomitant]
     Active Substance: SODIUM CHLORIDE
     Dates: start: 20190703, end: 20190705
  32. SALINE [Concomitant]
     Active Substance: SODIUM CHLORIDE
     Dates: start: 20190612, end: 20190614
  33. OMEPRAZOLE. [Concomitant]
     Active Substance: OMEPRAZOLE
     Dates: start: 20190906
  34. POLARAMINE [Concomitant]
     Active Substance: DEXCHLORPHENIRAMINE MALEATE
     Route: 042
     Dates: start: 20190404, end: 20190404
  35. OBINUTUZUMAB. [Suspect]
     Active Substance: OBINUTUZUMAB
     Indication: B-CELL LYMPHOMA
     Dosage: AT A FIXED DOSE 7 DAYS BEFORE THE FIRST DOSE OF RO7082859?DATE OF MOST RECENT DOSE OF OBINUTUZUMAB P
     Route: 042
     Dates: start: 20190404
  36. EPROSARTAN [Concomitant]
     Active Substance: EPROSARTAN
     Dates: start: 20190906
  37. PARACETAMOL [Concomitant]
     Active Substance: ACETAMINOPHEN
     Route: 042
     Dates: start: 20190502, end: 20190502
  38. PARACETAMOL [Concomitant]
     Active Substance: ACETAMINOPHEN
     Route: 042
     Dates: start: 20190405, end: 20190405
  39. OMEPRAZOLE. [Concomitant]
     Active Substance: OMEPRAZOLE
     Dates: start: 20190418, end: 20190430
  40. DEXAMETHASONE. [Concomitant]
     Active Substance: DEXAMETHASONE
     Route: 042
     Dates: start: 20190405, end: 20190405
  41. ATEZOLIZUMAB. [Suspect]
     Active Substance: ATEZOLIZUMAB
     Indication: B-CELL LYMPHOMA
     Dosage: DATE OF MOST RECENT DOSE PRIOR TO SECOND OCCURRENCE AT 10.25
     Route: 041
     Dates: start: 20190502
  42. EPROSARTAN [Concomitant]
     Active Substance: EPROSARTAN
     Dates: start: 20190815, end: 20190903
  43. EPROSARTAN [Concomitant]
     Active Substance: EPROSARTAN
     Dates: start: 20190705, end: 20190723
  44. EPROSARTAN [Concomitant]
     Active Substance: EPROSARTAN
     Dates: start: 20190503, end: 20190521
  45. PARACETAMOL [Concomitant]
     Active Substance: ACETAMINOPHEN
     Route: 042
     Dates: start: 20190411, end: 20190411
  46. FUROSEMIDE. [Concomitant]
     Active Substance: FUROSEMIDE
     Indication: PROPHYLAXIS
     Dates: start: 20190413, end: 20190413
  47. OMEPRAZOLE. [Concomitant]
     Active Substance: OMEPRAZOLE
     Dates: start: 20190505, end: 20190521
  48. ALLOPURINOL. [Concomitant]
     Active Substance: ALLOPURINOL
     Indication: HYPERURICAEMIA
     Dates: start: 20190403, end: 20191218
  49. HIBOR [Concomitant]
     Indication: DEVICE RELATED THROMBOSIS
     Dates: start: 20190410, end: 20191010
  50. POLARAMINE [Concomitant]
     Active Substance: DEXCHLORPHENIRAMINE MALEATE
     Route: 042
     Dates: start: 20190411, end: 20190411
  51. METHYLPREDNISOLONE. [Concomitant]
     Active Substance: METHYLPREDNISOLONE
     Route: 042
     Dates: start: 20190502, end: 20190502
  52. ATORVASTATIN [Concomitant]
     Active Substance: ATORVASTATIN
     Dates: start: 20190815, end: 20190903
  53. EPROSARTAN [Concomitant]
     Active Substance: EPROSARTAN
     Dates: start: 20190526, end: 20190611
  54. PREDNISONE. [Concomitant]
     Active Substance: PREDNISONE
     Indication: LYMPHOMA
     Dates: end: 20190315
  55. PARACETAMOL [Concomitant]
     Active Substance: ACETAMINOPHEN
     Indication: BACK PAIN
     Dates: start: 20190403, end: 20190403
  56. PARACETAMOL [Concomitant]
     Active Substance: ACETAMINOPHEN
     Indication: CARPAL TUNNEL SYNDROME
     Dates: start: 2016
  57. SALINE [Concomitant]
     Active Substance: SODIUM CHLORIDE
     Dates: start: 20190522, end: 20190525
  58. OMEPRAZOLE. [Concomitant]
     Active Substance: OMEPRAZOLE
     Indication: HIATUS HERNIA
     Dates: start: 2018, end: 20190410
  59. OMEPRAZOLE. [Concomitant]
     Active Substance: OMEPRAZOLE
     Dates: start: 20190615, end: 20190702
  60. POLARAMINE [Concomitant]
     Active Substance: DEXCHLORPHENIRAMINE MALEATE
     Route: 042
     Dates: start: 20190405, end: 20190405
  61. METHYLPREDNISOLONE. [Concomitant]
     Active Substance: METHYLPREDNISOLONE
     Route: 042
     Dates: start: 20190411, end: 20190411
  62. DEXAMETHASONE. [Concomitant]
     Active Substance: DEXAMETHASONE
     Route: 042
     Dates: start: 20190404, end: 20190404

REACTIONS (2)
  - Cytokine release syndrome [Recovered/Resolved]
  - Cytokine release syndrome [Recovered/Resolved]

NARRATIVE: CASE EVENT DATE: 20190411
